FAERS Safety Report 4349178-9 (Version None)
Quarter: 2004Q2

REPORT INFORMATION
  Report Type: 
  Country: None (occurrence: None)
  Receive Date: 20040427
  Receipt Date: 20030815
  Transmission Date: 20050107
  Serious: No
  Sender: FDA-Public Use
  Company Number: 000624

PATIENT
  Age: 62 Year
  Sex: Male

DRUGS (2)
  1. ZEVALIN [Suspect]
     Indication: NON-HODGKIN'S LYMPHOMA
     Dosage: SEE IMAGE
     Route: 042
     Dates: start: 20030101, end: 20030101
  2. ZEVALIN [Suspect]
     Indication: NON-HODGKIN'S LYMPHOMA
     Dosage: SEE IMAGE
     Route: 042
     Dates: start: 20030805, end: 20030805

REACTIONS (2)
  - PAIN [None]
  - PYREXIA [None]
